FAERS Safety Report 16574055 (Version 1)
Quarter: 2019Q3

REPORT INFORMATION
  Report Type: Spontaneous
  Country: NL (occurrence: NL)
  Receive Date: 20190715
  Receipt Date: 20190715
  Transmission Date: 20191004
  Serious: Yes (Other)
  Sender: FDA-Public Use
  Company Number: NL-ANIPHARMA-2019-NL-000029

PATIENT
  Age: 21 Year
  Sex: Female

DRUGS (6)
  1. CANDESARTAN. [Suspect]
     Active Substance: CANDESARTAN
     Indication: MIGRAINE
     Dosage: 16 MG, HIGHER IN DOSES NOT  POSSIBLE
     Route: 048
  2. SANDOMIGRAN [Suspect]
     Active Substance: PIZOTYLINE
     Dosage: 3 MILLIGRAM DAILY
     Route: 065
  3. ANTIMIGRAINE PREPARATIONS [Suspect]
     Active Substance: UNSPECIFIED INGREDIENT
     Dosage: UNK
     Route: 065
  4. RIZATRIPTAN. [Suspect]
     Active Substance: RIZATRIPTAN
     Dosage: 6-8 DAYS A MONTH
     Route: 065
  5. TOPIRAMATE. [Suspect]
     Active Substance: TOPIRAMATE
     Dosage: 100 MG DAILY
     Route: 065
  6. INDERAL LA [Suspect]
     Active Substance: PROPRANOLOL HYDROCHLORIDE
     Dosage: 40 MG DAILY

REACTIONS (5)
  - Depressed mood [Unknown]
  - Treatment failure [Unknown]
  - Fatigue [Unknown]
  - Syncope [Unknown]
  - Product use in unapproved indication [Unknown]
